FAERS Safety Report 5274992-5 (Version None)
Quarter: 2007Q1

REPORT INFORMATION
  Report Type: 
  Country: None (occurrence: None)
  Receive Date: 20070325
  Receipt Date: 20070315
  Transmission Date: 20070707
  Serious: Yes (Hospitalization)
  Sender: FDA-Public Use
  Company Number: BR-ABBOTT-07P-020-0362211-00

PATIENT
  Sex: Male
  Weight: 70 kg

DRUGS (4)
  1. KALETRA [Suspect]
     Indication: HIV INFECTION
     Route: 048
  2. TENOFOVIR DISOPROXIL FUMARATE [Concomitant]
     Indication: HIV INFECTION
     Route: 048
  3. LAMIVUDINE [Concomitant]
     Indication: HIV INFECTION
     Route: 048
  4. BACTRIM [Concomitant]
     Indication: HIV INFECTION
     Route: 048

REACTIONS (6)
  - ASTHENIA [None]
  - ERYTHEMA [None]
  - HEPATOTOXICITY [None]
  - PLATELET AGGREGATION DECREASED [None]
  - PROTHROMBIN LEVEL INCREASED [None]
  - TRANSAMINASES INCREASED [None]
